FAERS Safety Report 10070369 (Version 1)
Quarter: 2014Q2

REPORT INFORMATION
  Report Type: Spontaneous
  Country: FR (occurrence: FR)
  Receive Date: 20140410
  Receipt Date: 20140410
  Transmission Date: 20141212
  Serious: Yes (Life-Threatening)
  Sender: FDA-Public Use
  Company Number: FR-AMGEN INC.-FRASP2014025134

PATIENT
  Age: 49 Year
  Sex: Male

DRUGS (16)
  1. NEUPOGEN [Suspect]
     Indication: PRODUCT USED FOR UNKNOWN INDICATION
     Dosage: 0.3 MG/ML, UNK
     Route: 058
     Dates: start: 20080225, end: 20080303
  2. STEMGEN [Suspect]
     Indication: PRODUCT USED FOR UNKNOWN INDICATION
     Dosage: 20 MUG/KG, UNK
     Route: 058
     Dates: start: 20080225, end: 20080303
  3. ZELITREX [Concomitant]
     Dosage: UNK
     Dates: start: 20070727
  4. PENTACARINAT [Concomitant]
     Dosage: UNK
     Dates: start: 20080225, end: 20080303
  5. VENTOLINE                          /00139501/ [Concomitant]
     Dosage: UNK
  6. ZYRTEC [Concomitant]
     Dosage: UNK
  7. RANITIDINE [Concomitant]
     Dosage: UNK
  8. ARACYTINE [Concomitant]
     Dosage: UNK
     Dates: start: 20080220
  9. CYCLOPHOSPHAMIDE [Concomitant]
     Indication: NON-HODGKIN^S LYMPHOMA
     Dosage: UNK
  10. EPIRUBICIN [Concomitant]
     Indication: NON-HODGKIN^S LYMPHOMA
     Dosage: UNK
  11. FLUOROURACIL [Concomitant]
     Indication: NON-HODGKIN^S LYMPHOMA
     Dosage: UNK
  12. FLUDARABINE [Concomitant]
     Dosage: UNK
     Dates: start: 20060711, end: 20070119
  13. RITUXIMAB [Concomitant]
     Dosage: UNK
     Dates: end: 200801
  14. DOXORUBICIN [Concomitant]
     Dosage: UNK
     Dates: end: 200801
  15. VINCRISTINE [Concomitant]
     Dosage: UNK
     Dates: end: 200801
  16. PREDNISOLONE [Concomitant]
     Dosage: UNK
     Dates: end: 200801

REACTIONS (1)
  - Burkitt^s leukaemia [Not Recovered/Not Resolved]
